FAERS Safety Report 9845616 (Version 1)
Quarter: 2014Q1

REPORT INFORMATION
  Report Type: Spontaneous
  Country: US (occurrence: US)
  Receive Date: 20140127
  Receipt Date: 20140127
  Transmission Date: 20141002
  Serious: Yes (Other)
  Sender: FDA-Public Use
  Company Number: PHEH2014US001625

PATIENT
  Age: 64 Year
  Sex: Male

DRUGS (30)
  1. METHYLPHENIDATE HYDROCHLORIDE [Suspect]
     Indication: ATTENTION DEFICIT/HYPERACTIVITY DISORDER
     Dosage: 10 MG, PRN
     Route: 048
  2. METHYLPHENIDATE HYDROCHLORIDE [Suspect]
     Dosage: 10 MG, TID
     Route: 048
     Dates: start: 201312
  3. TESTOSTERONE [Concomitant]
     Dosage: 1.2 ML, BID
     Route: 048
  4. TRAMADOL HCL [Concomitant]
     Dosage: 50 MG, 1-2 EACH 6 HOURS
  5. MSM [Concomitant]
     Dosage: 1500 MG, BID
  6. DOSS [Concomitant]
     Dosage: 100 MG, QD
  7. COSAMIN DS [Concomitant]
     Dosage: UNK UKN, TID
  8. DIAZEPAM [Concomitant]
     Dosage: 5-7.5 MG, TID
     Route: 048
  9. KETOPROFEN [Concomitant]
     Dosage: UNK UKN, UNK
     Route: 061
  10. OMEPRAZOLE [Concomitant]
     Dosage: 20 MG, UNK
     Route: 048
  11. ASA [Concomitant]
     Dosage: UNK UKN, QD
  12. METAMUCIL [Concomitant]
     Dosage: 4 DF, QD
  13. VITAMIN A [Concomitant]
     Dosage: 25000 IU, UNK
  14. VITAMIN B COMPLEX [Concomitant]
     Dosage: UNK UKN, UNK
  15. NIACIN [Concomitant]
     Dosage: 4 UKN, QD
  16. VITAMIN B12 [Concomitant]
     Dosage: TIME RELEASED (100MCG QD) AND SUBLINGUAL (500MCG QD OR PRN)
  17. VITAMIN C [Concomitant]
     Dosage: 500 MG, QD
  18. VITAMIN D [Concomitant]
     Dosage: 400 IU, QD
  19. VITAMIN E [Concomitant]
     Dosage: 800 IU, QD
  20. FOLIC ACID [Concomitant]
     Dosage: 800 UG, QD
  21. MAGNESIUM [Concomitant]
     Dosage: 250 MG, QD
  22. POTASSIUM [Concomitant]
     Dosage: 99 MG, QID
  23. LYSINE [Concomitant]
     Dosage: UNK UKN, UNK
  24. FISH OIL CONCENTRATE [Concomitant]
     Dosage: UNK UKN, BID
  25. SELENIUM [Concomitant]
     Dosage: 420 UG, QD
  26. CALCIUM [Concomitant]
     Dosage: 600 MG, BID
  27. COQ-10 [Concomitant]
     Dosage: 200 MG, BID
  28. LYCOPENE [Concomitant]
     Dosage: UNK UKN, UNK
  29. DHEA [Concomitant]
     Dosage: 50 MG, QD
  30. IODINE [Concomitant]
     Indication: THYROID DISORDER
     Dosage: UNK UKN, UNK

REACTIONS (5)
  - Cataract [Unknown]
  - Gait disturbance [Unknown]
  - Vision blurred [Unknown]
  - Decreased appetite [Unknown]
  - Dizziness [Unknown]
